FAERS Safety Report 16102853 (Version 4)
Quarter: 2019Q2

REPORT INFORMATION
  Report Type: Report from Study
  Country: FR (occurrence: FR)
  Receive Date: 20190321
  Receipt Date: 20190523
  Transmission Date: 20190711
  Serious: Yes (Hospitalization, Other)
  Sender: FDA-Public Use
  Company Number: FR-EISAI MEDICAL RESEARCH-EC-2019-053837

PATIENT
  Age: 77 Year
  Sex: Female
  Weight: 55 kg

DRUGS (26)
  1. LENVATINIB [Suspect]
     Active Substance: LENVATINIB
     Route: 065
     Dates: start: 20190220, end: 20190312
  2. PEMBROLIZUMAB. [Suspect]
     Active Substance: PEMBROLIZUMAB
     Route: 041
     Dates: start: 20190109, end: 20190109
  3. KARDEGIC [Concomitant]
     Active Substance: ASPIRIN DL-LYSINE
     Dates: start: 20181007
  4. UVEDOSE [Concomitant]
     Active Substance: CHOLECALCIFEROL
     Dates: start: 20181007
  5. SMECTA [Concomitant]
     Active Substance: MONTMORILLONITE
     Dates: start: 20190125
  6. LENVATINIB [Suspect]
     Active Substance: LENVATINIB
     Route: 065
     Dates: start: 20190117, end: 20190204
  7. ACETAMINOPHEN. [Concomitant]
     Active Substance: ACETAMINOPHEN
     Dates: start: 20181007
  8. ARESTAL [Concomitant]
     Active Substance: LOPERAMIDE OXIDE
     Dates: start: 20181007
  9. CARDENSIEL [Concomitant]
     Active Substance: BISOPROLOL FUMARATE
     Dates: start: 20181212
  10. PRIMPERAN [Concomitant]
     Active Substance: METOCLOPRAMIDE HYDROCHLORIDE
     Dates: start: 20190116
  11. FUNGIZONE [Concomitant]
     Active Substance: AMPHOTERICIN B
     Dates: start: 20190116
  12. TITANOREINE [Concomitant]
     Active Substance: CARRAGEENAN\TITANIUM\ZINC
     Dates: start: 20190116
  13. DAFALGAN CODEINE [Concomitant]
     Active Substance: ACETAMINOPHEN\CODEINE PHOSPHATE
     Dates: start: 20181007
  14. LENVATINIB [Suspect]
     Active Substance: LENVATINIB
     Indication: ENDOMETRIAL CANCER
     Route: 048
     Dates: start: 20181128, end: 20181220
  15. BROMAZEPAM [Concomitant]
     Active Substance: BROMAZEPAM
     Dates: start: 20181007
  16. IMOVANE [Concomitant]
     Active Substance: ZOPICLONE
     Dates: start: 20190121
  17. HYZAAR [Concomitant]
     Active Substance: HYDROCHLOROTHIAZIDE\LOSARTAN POTASSIUM
     Dates: start: 20181116
  18. INEXIUM [Concomitant]
     Active Substance: ESOMEPRAZOLE
     Dates: start: 201802
  19. CETIRIZINE HYDROCHLORIDE. [Concomitant]
     Active Substance: CETIRIZINE HYDROCHLORIDE
     Dates: start: 20181007
  20. CALCIDOSE VITAMINE D [Concomitant]
     Active Substance: CALCIUM\CHOLECALCIFEROL
     Dates: start: 20190116
  21. EZETROL [Concomitant]
     Active Substance: EZETIMIBE
     Dates: start: 20181007
  22. PEMBROLIZUMAB. [Suspect]
     Active Substance: PEMBROLIZUMAB
     Indication: ENDOMETRIAL CANCER
     Route: 041
     Dates: start: 20181128, end: 20181219
  23. FLUVASTATIN SODIUM. [Concomitant]
     Active Substance: FLUVASTATIN SODIUM
     Dates: start: 20181007
  24. SPASFON [Concomitant]
     Dates: start: 20190116
  25. PANTOPRAZOLE [Concomitant]
     Active Substance: PANTOPRAZOLE
     Dates: start: 20190116
  26. TIORFAN [Concomitant]
     Active Substance: RACECADOTRIL
     Dates: start: 20190125

REACTIONS (3)
  - Urogenital fistula [Not Recovered/Not Resolved]
  - Acute kidney injury [Recovered/Resolved]
  - General physical health deterioration [Not Recovered/Not Resolved]

NARRATIVE: CASE EVENT DATE: 20190228
